FAERS Safety Report 20172174 (Version 1)
Quarter: 2021Q4

REPORT INFORMATION
  Report Type: Spontaneous
  Country: CA (occurrence: CA)
  Receive Date: 20211210
  Receipt Date: 20211210
  Transmission Date: 20220303
  Serious: Yes (Hospitalization)
  Sender: FDA-Public Use
  Company Number: CA-TEVA-2021-CA-1985451

PATIENT
  Age: 62 Year
  Sex: Female
  Weight: 63.9 kg

DRUGS (11)
  1. CINQAIR [Suspect]
     Active Substance: RESLIZUMAB
     Indication: Asthma
     Dosage: LAST DOSE- 11-NOV-2021, NEXT INFUSION SCHEDULED ON 09-DEC-2021
     Route: 042
     Dates: start: 20210722
  2. CINQAIR [Suspect]
     Active Substance: RESLIZUMAB
     Indication: Eosinophilic bronchitis
  3. TRELEGY ELLIPTA [Concomitant]
     Active Substance: FLUTICASONE FUROATE\UMECLIDINIUM BROMIDE\VILANTEROL TRIFENATATE
     Dosage: 200/62.5/25 MCG DAILY
  4. TRINTELLIX [Concomitant]
     Active Substance: VORTIOXETINE HYDROBROMIDE
  5. TYLENOL [Concomitant]
     Active Substance: ACETAMINOPHEN
     Dosage: #2PRN
  6. VENTOLIN [Concomitant]
     Active Substance: ALBUTEROL SULFATE
  7. FORTEO [Concomitant]
     Active Substance: TERIPARATIDE
  8. HUMAN IMMUNOGLOBULIN G [Concomitant]
     Active Substance: HUMAN IMMUNOGLOBULIN G
  9. ATROVENT [Concomitant]
     Active Substance: IPRATROPIUM BROMIDE
  10. PREDNISONE [Concomitant]
     Active Substance: PREDNISONE
  11. ROFLUMILAST [Concomitant]
     Active Substance: ROFLUMILAST
     Dosage: 500 MICROGRAM DAILY;

REACTIONS (3)
  - Rectal prolapse repair [Recovered/Resolved]
  - Flatulence [Unknown]
  - Abdominal discomfort [Unknown]

NARRATIVE: CASE EVENT DATE: 20211101
